FAERS Safety Report 8597822-2 (Version None)
Quarter: 2012Q3

REPORT INFORMATION
  Report Type: 
  Country: None (occurrence: None)
  Receive Date: 20120802
  Receipt Date: 20120723
  Transmission Date: 20120928
  Serious: Yes (Death, Other)
  Sender: FDA-Public Use
  Company Number: 2012P1052086

PATIENT

DRUGS (5)
  1. DULOXETINE HYDROCHLORIDE [Suspect]
  2. OXYMORPHONE [Suspect]
  3. LITHIUM CARBONATE [Suspect]
  4. CARISOPRODOL (NO PREF. NAME) [Suspect]
  5. MEPROBAMATE [Suspect]

REACTIONS (2)
  - TOXICITY TO VARIOUS AGENTS [None]
  - COMPLETED SUICIDE [None]
